FAERS Safety Report 6988662-6 (Version None)
Quarter: 2010Q3

REPORT INFORMATION
  Report Type: 
  Country: None (occurrence: None)
  Receive Date: 20100916
  Receipt Date: 20100907
  Transmission Date: 20110219
  Serious: Yes (Death, Hospitalization)
  Sender: FDA-Public Use
  Company Number: US-BAXTER-2010BH022619

PATIENT
  Sex: Female

DRUGS (1)
  1. DIANEAL [Suspect]
     Indication: PERITONEAL DIALYSIS
     Route: 033
     Dates: end: 20100830

REACTIONS (5)
  - ABDOMINAL PAIN [None]
  - HEPATIC CIRRHOSIS [None]
  - HYPOTENSION [None]
  - NAUSEA [None]
  - VOMITING [None]
